FAERS Safety Report 14686276 (Version 2)
Quarter: 2018Q1

REPORT INFORMATION
  Report Type: Spontaneous
  Country: GB (occurrence: GB)
  Receive Date: 20180327
  Receipt Date: 20180328
  Transmission Date: 20180509
  Serious: Yes (Hospitalization)
  Sender: FDA-Public Use
  Company Number: GB-TEVA-2018-GB-872169

PATIENT
  Age: 51 Year
  Sex: Female

DRUGS (8)
  1. BISOPROLOL [Suspect]
     Active Substance: BISOPROLOL
     Indication: INTENTIONAL OVERDOSE
     Route: 065
  2. GLUCAGON. [Concomitant]
     Active Substance: GLUCAGON
     Indication: VASOPLEGIA SYNDROME
     Route: 050
  3. CALCIUM CHLORIDE. [Concomitant]
     Active Substance: CALCIUM CHLORIDE
     Indication: VASOPLEGIA SYNDROME
     Route: 050
  4. INTRALIPID [Concomitant]
     Active Substance: EGG PHOSPHOLIPIDS\GLYCERIN\SOYBEAN OIL
     Indication: VASOPLEGIA SYNDROME
     Dosage: 1.5 ML/KG
     Route: 050
  5. NORADRENALINE [Concomitant]
     Active Substance: NOREPINEPHRINE
     Indication: VASOPLEGIA SYNDROME
     Dosage: 0.8 MG/KG/MIN
     Route: 050
  6. AMLODIPINE [Suspect]
     Active Substance: AMLODIPINE BESYLATE
     Indication: INTENTIONAL OVERDOSE
     Route: 065
  7. INSULIN [Suspect]
     Active Substance: INSULIN NOS
     Indication: VASOPLEGIA SYNDROME
     Dosage: 1.5 UNITS/KG/H
     Route: 050
  8. INTRALIPID [Concomitant]
     Active Substance: EGG PHOSPHOLIPIDS\GLYCERIN\SOYBEAN OIL
     Indication: VASOPLEGIA SYNDROME
     Dosage: 15 ML/KG/H
     Route: 050

REACTIONS (3)
  - Intentional overdose [Recovered/Resolved]
  - Vasoplegia syndrome [Recovered/Resolved]
  - Hypoglycaemia [Unknown]
